FAERS Safety Report 19063452 (Version 18)
Quarter: 2025Q2

REPORT INFORMATION
  Report Type: Report from Study
  Country: US (occurrence: US)
  Receive Date: 20210326
  Receipt Date: 20250402
  Transmission Date: 20250717
  Serious: Yes (Hospitalization, Other)
  Sender: NOVARTIS
  Company Number: NVSC2021US056436

PATIENT
  Age: 3 Month
  Sex: Female
  Weight: 10.7 kg

DRUGS (105)
  1. ZOLGENSMA [Suspect]
     Active Substance: ONASEMNOGENE ABEPARVOVEC-XIOI
     Indication: Spinal muscular atrophy
     Route: 042
     Dates: start: 20210223, end: 20210223
  2. PREDNISOLONE [Concomitant]
     Active Substance: PREDNISOLONE
     Indication: Product used for unknown indication
     Route: 065
  3. PREDNISOLONE [Concomitant]
     Active Substance: PREDNISOLONE
     Dosage: 1 MG/KG, QD
     Route: 065
  4. PREDNISOLONE [Concomitant]
     Active Substance: PREDNISOLONE
     Route: 065
     Dates: start: 20210222, end: 20210304
  5. PREDNISOLONE [Concomitant]
     Active Substance: PREDNISOLONE
     Route: 065
     Dates: start: 20210304, end: 20210310
  6. PREDNISOLONE [Concomitant]
     Active Substance: PREDNISOLONE
     Route: 065
     Dates: start: 20210311, end: 20210315
  7. PREDNISOLONE [Concomitant]
     Active Substance: PREDNISOLONE
     Route: 065
     Dates: start: 20210316, end: 20210528
  8. PREDNISOLONE [Concomitant]
     Active Substance: PREDNISOLONE
     Dosage: UNK, QD
     Route: 065
     Dates: start: 20210324, end: 20210528
  9. PREDNISOLONE [Concomitant]
     Active Substance: PREDNISOLONE
     Dosage: 10.8 MG, QD
     Route: 065
     Dates: start: 20210316, end: 20210327
  10. PREDNISOLONE [Concomitant]
     Active Substance: PREDNISOLONE
     Dosage: 15 MG, QD
     Route: 065
     Dates: start: 20210311, end: 20210315
  11. CEPHALEXIN [Concomitant]
     Active Substance: CEPHALEXIN
     Indication: Product used for unknown indication
     Dosage: UNK, Q8H (50 MG/ML 325 MG0
     Route: 065
     Dates: start: 20210327, end: 20210327
  12. CEPHALEXIN [Concomitant]
     Active Substance: CEPHALEXIN
     Dosage: UNK, Q8H (50 MG/ML)
     Route: 065
     Dates: start: 20210326, end: 20210405
  13. CEPHALEXIN [Concomitant]
     Active Substance: CEPHALEXIN
     Dosage: UNK, Q6H (250 MG)
     Route: 065
     Dates: start: 20210326, end: 20210326
  14. CEPHALEXIN [Concomitant]
     Active Substance: CEPHALEXIN
     Dosage: UNK, Q6H (50ML/MG, 250 MG)
     Route: 065
     Dates: start: 20210323, end: 20210326
  15. CEPHALEXIN [Concomitant]
     Active Substance: CEPHALEXIN
     Dosage: UNK, Q6H (50ML/MG)
     Route: 065
     Dates: start: 20210323, end: 20210323
  16. CEPHALEXIN [Concomitant]
     Active Substance: CEPHALEXIN
     Route: 065
     Dates: start: 20210325, end: 20210325
  17. ENALAPRIL [Concomitant]
     Active Substance: ENALAPRIL
     Indication: Product used for unknown indication
     Dosage: UNK, QD (1MG/ML)
     Route: 065
     Dates: start: 20210327, end: 20210421
  18. ENALAPRIL [Concomitant]
     Active Substance: ENALAPRIL
     Route: 065
     Dates: start: 20210326, end: 20210326
  19. ENALAPRIL [Concomitant]
     Active Substance: ENALAPRIL
     Dosage: UNK, QD (1MG/ML, 2MG)
     Route: 065
     Dates: start: 20210327, end: 20210327
  20. ENALAPRIL [Concomitant]
     Active Substance: ENALAPRIL
     Route: 065
     Dates: start: 20210325, end: 20210325
  21. ENALAPRIL [Concomitant]
     Active Substance: ENALAPRIL
     Dosage: UNK, QD(1MG/ML, 1.5 MG)
     Route: 065
     Dates: start: 20210325, end: 20210326
  22. ENALAPRIL [Concomitant]
     Active Substance: ENALAPRIL
     Dosage: UNK, QD (1MG/ML)
     Route: 065
     Dates: start: 20210326, end: 20210327
  23. ENALAPRIL [Concomitant]
     Active Substance: ENALAPRIL
     Dosage: UNK, QD (1MG/ML)
     Route: 065
     Dates: start: 20210325, end: 20210325
  24. ENALAPRIL [Concomitant]
     Active Substance: ENALAPRIL
     Dosage: UNK, QD (1MG/M, 1 MGL)
     Route: 065
     Dates: start: 20210324, end: 20210325
  25. ONDANSETRON [Concomitant]
     Active Substance: ONDANSETRON
     Indication: Product used for unknown indication
     Dosage: 1.5 MG, Q8H
     Route: 065
     Dates: start: 20210325, end: 20210326
  26. ONDANSETRON [Concomitant]
     Active Substance: ONDANSETRON
     Route: 065
     Dates: start: 20210316, end: 20210325
  27. ONDANSETRON [Concomitant]
     Active Substance: ONDANSETRON
     Route: 065
     Dates: start: 20210308, end: 20210308
  28. LABETALOL [Concomitant]
     Active Substance: LABETALOL
     Indication: Product used for unknown indication
     Dosage: UNK, BID
     Route: 065
     Dates: start: 20210325, end: 20210405
  29. LABETALOL [Concomitant]
     Active Substance: LABETALOL
     Dosage: 40 MG, BID
     Route: 065
     Dates: start: 20210323, end: 20210323
  30. LABETALOL [Concomitant]
     Active Substance: LABETALOL
     Dosage: 32 MG, BID
     Route: 065
     Dates: start: 20210322, end: 20210323
  31. LABETALOL [Concomitant]
     Active Substance: LABETALOL
     Dosage: 26 MG
     Route: 065
     Dates: start: 20210321, end: 20210322
  32. LABETALOL [Concomitant]
     Active Substance: LABETALOL
     Dosage: 40 MG, BID
     Route: 065
     Dates: start: 20210323, end: 20210327
  33. LABETALOL [Concomitant]
     Active Substance: LABETALOL
     Route: 065
     Dates: start: 20210321, end: 20210321
  34. LABETALOL [Concomitant]
     Active Substance: LABETALOL
     Dosage: 20 MG, BID
     Route: 065
     Dates: start: 20210320, end: 20210321
  35. LABETALOL [Concomitant]
     Active Substance: LABETALOL
     Dosage: 15 MG, BID
     Route: 065
     Dates: start: 20210319, end: 20210320
  36. LABETALOL [Concomitant]
     Active Substance: LABETALOL
     Dosage: 12 MG, BID
     Route: 065
     Dates: start: 20210317, end: 20210319
  37. LABETALOL [Concomitant]
     Active Substance: LABETALOL
     Dosage: 16 MG
     Route: 065
     Dates: start: 20210317, end: 20210317
  38. LABETALOL [Concomitant]
     Active Substance: LABETALOL
     Dosage: 12 MG
     Route: 065
     Dates: start: 20210316, end: 20210317
  39. OMEPRAZOLE [Concomitant]
     Active Substance: OMEPRAZOLE
     Indication: Product used for unknown indication
     Route: 065
     Dates: start: 20210322, end: 20210513
  40. OMEPRAZOLE [Concomitant]
     Active Substance: OMEPRAZOLE
     Route: 065
     Dates: start: 20210323, end: 20210323
  41. OMEPRAZOLE [Concomitant]
     Active Substance: OMEPRAZOLE
     Dosage: 10 MG, BID
     Route: 065
     Dates: start: 20210308, end: 20210327
  42. AMLODIPINE [Concomitant]
     Active Substance: AMLODIPINE BESYLATE
     Indication: Product used for unknown indication
     Dosage: UNK, QD
     Route: 065
     Dates: start: 20210324, end: 20210330
  43. AMLODIPINE [Concomitant]
     Active Substance: AMLODIPINE BESYLATE
     Route: 065
     Dates: start: 20210319, end: 20210319
  44. AMLODIPINE [Concomitant]
     Active Substance: AMLODIPINE BESYLATE
     Dosage: UNK, QD (5.4 MG)
     Route: 065
     Dates: start: 20210320, end: 20210327
  45. AMLODIPINE [Concomitant]
     Active Substance: AMLODIPINE BESYLATE
     Dosage: UNK, QD (1MG/ML, 4.5 MG)
     Route: 065
     Dates: start: 20210317, end: 20210319
  46. AMLODIPINE [Concomitant]
     Active Substance: AMLODIPINE BESYLATE
     Dosage: UNK, QD (1MG/ML, 3.5 MG)
     Route: 065
     Dates: start: 20210316, end: 20210316
  47. AMLODIPINE [Concomitant]
     Active Substance: AMLODIPINE BESYLATE
     Dosage: UNK, QD (1MG/ML, 4.5 MG)
     Route: 065
     Dates: start: 20210316, end: 20210316
  48. AMLODIPINE [Concomitant]
     Active Substance: AMLODIPINE BESYLATE
     Dosage: 1.1 MG, QD
     Route: 065
     Dates: start: 20210315, end: 20210315
  49. AMLODIPINE [Concomitant]
     Active Substance: AMLODIPINE BESYLATE
     Dosage: 125 MG, QD
     Route: 065
     Dates: start: 20210315, end: 20210315
  50. AMLODIPINE [Concomitant]
     Active Substance: AMLODIPINE BESYLATE
     Dosage: 2.4 MG, QD
     Route: 065
     Dates: start: 20210311, end: 20210315
  51. AMLODIPINE [Concomitant]
     Active Substance: AMLODIPINE BESYLATE
     Route: 065
     Dates: start: 20210310, end: 20210310
  52. AMLODIPINE [Concomitant]
     Active Substance: AMLODIPINE BESYLATE
     Dosage: 1.2 MG, QD
     Route: 065
     Dates: start: 20210307, end: 20210310
  53. HYDRALAZINE [Concomitant]
     Active Substance: HYDRALAZINE HYDROCHLORIDE
     Indication: Product used for unknown indication
     Route: 065
     Dates: start: 20210322, end: 20210322
  54. HYDRALAZINE [Concomitant]
     Active Substance: HYDRALAZINE HYDROCHLORIDE
     Route: 065
     Dates: start: 20210317, end: 20210317
  55. HYDRALAZINE [Concomitant]
     Active Substance: HYDRALAZINE HYDROCHLORIDE
     Dosage: 2.2 MG, Q6H (20 MG/ML)
     Route: 065
     Dates: start: 20210316, end: 20210321
  56. HYDRALAZINE [Concomitant]
     Active Substance: HYDRALAZINE HYDROCHLORIDE
     Dosage: 1.2 MG, Q4H (20 MG/ML)
     Route: 065
     Dates: start: 20210314, end: 20210316
  57. HYDRALAZINE [Concomitant]
     Active Substance: HYDRALAZINE HYDROCHLORIDE
     Route: 065
     Dates: start: 20210313, end: 20210313
  58. HYDRALAZINE [Concomitant]
     Active Substance: HYDRALAZINE HYDROCHLORIDE
     Dosage: 2.4 MG, Q6H (20 MG/ML)
     Route: 065
     Dates: start: 20210310, end: 20210314
  59. HYDRALAZINE [Concomitant]
     Active Substance: HYDRALAZINE HYDROCHLORIDE
     Dosage: 2.4 MG, Q4H (20 MG/ML)
     Route: 065
     Dates: start: 20210307, end: 20210310
  60. HYDRALAZINE [Concomitant]
     Active Substance: HYDRALAZINE HYDROCHLORIDE
     Dosage: 1.2 MG, Q4H (20 MG/ML)
     Route: 065
     Dates: start: 20210306, end: 20210307
  61. HYDRALAZINE [Concomitant]
     Active Substance: HYDRALAZINE HYDROCHLORIDE
     Route: 065
     Dates: start: 20210306, end: 20210306
  62. HYDRALAZINE [Concomitant]
     Active Substance: HYDRALAZINE HYDROCHLORIDE
     Route: 065
     Dates: start: 20210305, end: 20210305
  63. FUROSEMIDE [Concomitant]
     Active Substance: FUROSEMIDE
     Indication: Product used for unknown indication
     Route: 065
     Dates: start: 20210305, end: 20210305
  64. FUROSEMIDE [Concomitant]
     Active Substance: FUROSEMIDE
     Route: 065
     Dates: start: 20210318, end: 20210318
  65. FUROSEMIDE [Concomitant]
     Active Substance: FUROSEMIDE
     Route: 065
     Dates: start: 20210308, end: 20210308
  66. FUROSEMIDE [Concomitant]
     Active Substance: FUROSEMIDE
     Route: 065
     Dates: start: 20210306, end: 20210306
  67. FUROSEMIDE [Concomitant]
     Active Substance: FUROSEMIDE
     Route: 065
     Dates: start: 20210309, end: 20210309
  68. FUROSEMIDE [Concomitant]
     Active Substance: FUROSEMIDE
     Route: 065
     Dates: start: 20210310, end: 20210310
  69. FUROSEMIDE [Concomitant]
     Active Substance: FUROSEMIDE
     Route: 065
     Dates: start: 20210311, end: 20210311
  70. FUROSEMIDE [Concomitant]
     Active Substance: FUROSEMIDE
     Route: 065
     Dates: start: 20210312, end: 20210312
  71. FUROSEMIDE [Concomitant]
     Active Substance: FUROSEMIDE
     Route: 065
     Dates: start: 20210313, end: 20210313
  72. FUROSEMIDE [Concomitant]
     Active Substance: FUROSEMIDE
     Route: 065
     Dates: start: 20210314, end: 20210314
  73. FUROSEMIDE [Concomitant]
     Active Substance: FUROSEMIDE
     Route: 065
     Dates: start: 20210316, end: 20210316
  74. FUROSEMIDE [Concomitant]
     Active Substance: FUROSEMIDE
     Route: 065
     Dates: start: 20210314, end: 20210314
  75. ACETAMINOPHEN [Concomitant]
     Active Substance: ACETAMINOPHEN
     Indication: Product used for unknown indication
     Route: 065
     Dates: start: 20210306, end: 20210306
  76. ACETAMINOPHEN [Concomitant]
     Active Substance: ACETAMINOPHEN
     Route: 065
     Dates: start: 20210312, end: 20210312
  77. ACETAMINOPHEN [Concomitant]
     Active Substance: ACETAMINOPHEN
     Route: 065
     Dates: start: 20210314, end: 20210314
  78. CEFTRIAXONE [Concomitant]
     Active Substance: CEFTRIAXONE
     Indication: Product used for unknown indication
     Route: 065
     Dates: start: 20210313, end: 20210313
  79. CEFTRIAXONE [Concomitant]
     Active Substance: CEFTRIAXONE
     Dosage: 500 MG, Q12H (40MG/ML)
     Route: 065
     Dates: start: 20210312, end: 20210315
  80. HEPARIN [Concomitant]
     Active Substance: HEPARIN SODIUM
     Indication: Product used for unknown indication
     Route: 065
     Dates: start: 20210311, end: 20210313
  81. HEPARIN [Concomitant]
     Active Substance: HEPARIN SODIUM
     Route: 065
     Dates: start: 20210310, end: 20210310
  82. HEPARIN [Concomitant]
     Active Substance: HEPARIN SODIUM
     Route: 065
     Dates: start: 20210311, end: 20210311
  83. HEPARIN [Concomitant]
     Active Substance: HEPARIN SODIUM
     Route: 065
     Dates: start: 20210310, end: 20210313
  84. HEPARIN [Concomitant]
     Active Substance: HEPARIN SODIUM
     Route: 065
     Dates: start: 20210309, end: 20210309
  85. SODIUM POLYSTYRENE SULFONATE [Concomitant]
     Active Substance: SODIUM POLYSTYRENE SULFONATE
     Indication: Product used for unknown indication
     Dosage: 9 G, QD
     Route: 065
     Dates: start: 20210309, end: 20210311
  86. SODIUM POLYSTYRENE SULFONATE [Concomitant]
     Active Substance: SODIUM POLYSTYRENE SULFONATE
     Dosage: 6 G, QD
     Route: 065
     Dates: start: 20210312, end: 20210316
  87. LIDOCAINE [Concomitant]
     Active Substance: LIDOCAINE
     Indication: Product used for unknown indication
     Route: 065
     Dates: start: 20210304, end: 20210305
  88. LIDOCAINE [Concomitant]
     Active Substance: LIDOCAINE
     Route: 065
     Dates: start: 20210310, end: 20210310
  89. MIDAZOLAM [Concomitant]
     Active Substance: MIDAZOLAM
     Indication: Product used for unknown indication
     Route: 065
     Dates: start: 20210310, end: 20210310
  90. MIDAZOLAM [Concomitant]
     Active Substance: MIDAZOLAM
     Route: 065
     Dates: start: 20210311, end: 20210311
  91. DEXMEDETOMIDINE [Concomitant]
     Active Substance: DEXMEDETOMIDINE
     Indication: Product used for unknown indication
     Route: 065
     Dates: start: 20210305, end: 20210305
  92. DEXTROSE [Concomitant]
     Active Substance: DEXTROSE MONOHYDRATE
     Indication: Product used for unknown indication
     Route: 042
     Dates: start: 20210305, end: 20210309
  93. SODIUM CHLORIDE [Concomitant]
     Active Substance: SODIUM CHLORIDE
     Indication: Product used for unknown indication
     Route: 042
     Dates: start: 20210305, end: 20210305
  94. SODIUM CHLORIDE [Concomitant]
     Active Substance: SODIUM CHLORIDE
     Route: 042
     Dates: start: 20210310, end: 20210312
  95. ZINC OXIDE [Concomitant]
     Active Substance: ZINC OXIDE
     Indication: Product used for unknown indication
     Route: 065
     Dates: start: 20210305, end: 20210327
  96. METHYLPREDNISOLONE SODIUM SUCCINATE [Concomitant]
     Active Substance: METHYLPREDNISOLONE SODIUM SUCCINATE
     Indication: Product used for unknown indication
     Dosage: 5.2 MG, Q6H
     Route: 065
     Dates: start: 20210305, end: 20210311
  97. METHYLPREDNISOLONE SODIUM SUCCINATE [Concomitant]
     Active Substance: METHYLPREDNISOLONE SODIUM SUCCINATE
     Dosage: 5.2 MG, Q6H
     Route: 065
     Dates: start: 20210305, end: 20210305
  98. METHYLPREDNISOLONE SODIUM SUCCINATE [Concomitant]
     Active Substance: METHYLPREDNISOLONE SODIUM SUCCINATE
     Route: 065
     Dates: start: 20210305, end: 20210305
  99. METHYLPREDNISOLONE SODIUM SUCCINATE [Concomitant]
     Active Substance: METHYLPREDNISOLONE SODIUM SUCCINATE
     Route: 065
     Dates: start: 20210306, end: 20210306
  100. PANTOPRAZOLE [Concomitant]
     Active Substance: PANTOPRAZOLE
     Indication: Product used for unknown indication
     Route: 065
     Dates: start: 20210305, end: 20210305
  101. PANTOPRAZOLE [Concomitant]
     Active Substance: PANTOPRAZOLE
     Dosage: 10 MG, Q12H
     Route: 065
     Dates: start: 20210305, end: 20210308
  102. SODIUM CHLORIDE [Concomitant]
     Active Substance: SODIUM CHLORIDE
     Indication: Product used for unknown indication
     Route: 065
     Dates: start: 20210305, end: 20210305
  103. SODIUM CHLORIDE [Concomitant]
     Active Substance: SODIUM CHLORIDE
     Route: 065
     Dates: start: 20210305, end: 20210327
  104. SODIUM CHLORIDE [Concomitant]
     Active Substance: SODIUM CHLORIDE
     Route: 065
     Dates: start: 20210305, end: 20210305
  105. SODIUM CHLORIDE [Concomitant]
     Active Substance: SODIUM CHLORIDE
     Route: 065
     Dates: start: 20210306, end: 20210306

REACTIONS (16)
  - Thrombotic microangiopathy [Recovering/Resolving]
  - Oedema [Recovering/Resolving]
  - Kidney infection [Recovered/Resolved]
  - Haemolytic uraemic syndrome [Recovering/Resolving]
  - Secondary hypertension [Recovered/Resolved]
  - Escherichia infection [Recovering/Resolving]
  - Diarrhoea [Recovered/Resolved]
  - Alanine aminotransferase increased [Recovered/Resolved]
  - Aspartate aminotransferase increased [Recovered/Resolved]
  - Aspartate aminotransferase increased [Recovered/Resolved]
  - Aspartate aminotransferase decreased [Recovered/Resolved]
  - Alanine aminotransferase increased [Recovered/Resolved]
  - Aspartate aminotransferase increased [Recovered/Resolved]
  - Hypercalcaemia [Recovered/Resolved]
  - Protein total increased [Not Recovered/Not Resolved]
  - Blood creatine phosphokinase BB increased [Not Recovered/Not Resolved]

NARRATIVE: CASE EVENT DATE: 20210303
